FAERS Safety Report 10757938 (Version 4)
Quarter: 2016Q2

REPORT INFORMATION
  Report Type: Report from Study
  Country: DE (occurrence: DE)
  Receive Date: 20150203
  Receipt Date: 20160410
  Transmission Date: 20160815
  Serious: Yes (Hospitalization)
  Sender: FDA-Public Use
  Company Number: DE-CELGENE-062-21660-14081111

PATIENT
  Age: 75 Year
  Weight: 77 kg

DRUGS (2)
  1. ABRAXANE [Suspect]
     Active Substance: PACLITAXEL
     Indication: BREAST CANCER METASTATIC
     Route: 041
     Dates: start: 20140717, end: 20140717
  2. ABRAXANE [Suspect]
     Active Substance: PACLITAXEL
     Dosage: 600
     Route: 041
     Dates: start: 20140724, end: 20140724

REACTIONS (7)
  - Device related infection [Recovered/Resolved]
  - Hypocalcaemia [Recovered/Resolved]
  - Hypokalaemia [Recovered/Resolved]
  - Small intestinal obstruction [Recovered/Resolved]
  - Urinary tract infection [Recovered/Resolved]
  - Chronic kidney disease [Not Recovered/Not Resolved]
  - Hypocalcaemia [Not Recovered/Not Resolved]

NARRATIVE: CASE EVENT DATE: 20140720
